FAERS Safety Report 6863825-9 (Version None)
Quarter: 2010Q3

REPORT INFORMATION
  Report Type: 
  Country: None (occurrence: None)
  Receive Date: 20100721
  Receipt Date: 20080307
  Transmission Date: 20110219
  Serious: No
  Sender: FDA-Public Use
  Company Number: US-PFIZER INC-2008023823

PATIENT
  Sex: Male
  Weight: 70.3 kg

DRUGS (2)
  1. CHANTIX [Suspect]
     Indication: SMOKING CESSATION THERAPY
     Route: 048
     Dates: start: 20080305
  2. DRUG, UNSPECIFIED [Concomitant]
     Indication: SINUSITIS

REACTIONS (7)
  - AGITATION [None]
  - DISCOMFORT [None]
  - DIZZINESS [None]
  - DRUG ADMINISTRATION ERROR [None]
  - FEELING ABNORMAL [None]
  - FEELING HOT [None]
  - NAUSEA [None]
